FAERS Safety Report 17288285 (Version 1)
Quarter: 2020Q1

REPORT INFORMATION
  Report Type: Spontaneous
  Country: US (occurrence: US)
  Receive Date: 20191231
  Receipt Date: 20191231
  Transmission Date: 20200409
  Serious: No
  Sender: FDA-Public Use
  Company Number: None

PATIENT
  Sex: Male

DRUGS (1)
  1. TASIGNA [Suspect]
     Active Substance: NILOTINIB
     Indication: MEMORY IMPAIRMENT
     Route: 048
     Dates: start: 20180111

REACTIONS (2)
  - Contraindicated product prescribed [None]
  - Drug interaction [None]
